FAERS Safety Report 19163006 (Version 1)
Quarter: 2021Q2

REPORT INFORMATION
  Report Type: Spontaneous
  Country: FR (occurrence: FR)
  Receive Date: 20210421
  Receipt Date: 20210421
  Transmission Date: 20210717
  Serious: Yes (Other)
  Sender: FDA-Public Use
  Company Number: FR-SA-2021SA121125

PATIENT
  Age: 76 Year
  Sex: Female

DRUGS (6)
  1. AZOPT [Concomitant]
     Active Substance: BRINZOLAMIDE
     Indication: GLAUCOMA
  2. EXFORGE [Concomitant]
     Active Substance: AMLODIPINE BESYLATE\VALSARTAN
  3. INEXIUM [ESOMEPRAZOLE SODIUM] [Concomitant]
     Active Substance: ESOMEPRAZOLE SODIUM
  4. STILNOX [Suspect]
     Active Substance: ZOLPIDEM TARTRATE
     Dosage: UNK
  5. GANFORT [Concomitant]
     Active Substance: BIMATOPROST\TIMOLOL
  6. LYRICA [Concomitant]
     Active Substance: PREGABALIN

REACTIONS (6)
  - Pain [Unknown]
  - Dizziness [Unknown]
  - Chest pain [Unknown]
  - Alopecia [Unknown]
  - Nausea [Unknown]
  - Myalgia [Unknown]
